FAERS Safety Report 6960981-9 (Version None)
Quarter: 2010Q3

REPORT INFORMATION
  Report Type: 
  Country: None (occurrence: None)
  Receive Date: 20100901
  Receipt Date: 20100820
  Transmission Date: 20110219
  Serious: Yes (Other)
  Sender: FDA-Public Use
  Company Number: CN-BAYER-201036791GPV

PATIENT
  Age: 32 Year
  Sex: Female
  Weight: 55 kg

DRUGS (3)
  1. SORAFENIB [Suspect]
     Indication: NASOPHARYNGEAL CANCER
     Dosage: TOTAL DAILY DOSE: 800 MG  UNIT DOSE: 200 MG
     Route: 048
     Dates: start: 20100810
  2. CISPLATIN [Suspect]
     Indication: NASOPHARYNGEAL CANCER
  3. FLUOROURACIL [Suspect]
     Indication: NASOPHARYNGEAL CANCER

REACTIONS (6)
  - CHEST DISCOMFORT [None]
  - DYSPNOEA [None]
  - ELECTROLYTE IMBALANCE [None]
  - NAUSEA [None]
  - RESTLESSNESS [None]
  - VOMITING [None]
